FAERS Safety Report 6566478-2 (Version None)
Quarter: 2010Q1

REPORT INFORMATION
  Report Type: 
  Country: None (occurrence: None)
  Receive Date: 20100127
  Receipt Date: 20100112
  Transmission Date: 20100710
  Serious: Yes (Hospitalization, Other)
  Sender: FDA-Public Use
  Company Number: 004446

PATIENT
  Sex: Male

DRUGS (1)
  1. LEVETIRACETAM [Suspect]
     Indication: CONVULSION
     Dosage: (ORAL)
     Route: 048
     Dates: start: 20060704, end: 20100111

REACTIONS (2)
  - CEREBRAL INFARCTION [None]
  - POSTICTAL PARALYSIS [None]
